FAERS Safety Report 13306093 (Version 1)
Quarter: 2017Q1

REPORT INFORMATION
  Report Type: Spontaneous
  Country: US (occurrence: US)
  Receive Date: 20170308
  Receipt Date: 20170308
  Transmission Date: 20170428
  Serious: Yes (Death, Life-Threatening, Other)
  Sender: FDA-Public Use
  Company Number: US-ROCHE-1890727

PATIENT
  Age: 72 Year
  Sex: Male

DRUGS (7)
  1. ISMO [Concomitant]
     Active Substance: ISOSORBIDE MONONITRATE
  2. TECENTRIQ [Suspect]
     Active Substance: ATEZOLIZUMAB
     Indication: BLADDER CANCER
     Route: 065
     Dates: start: 20161230, end: 20170112
  3. ASA [Concomitant]
     Active Substance: ASPIRIN
  4. LASIX [Concomitant]
     Active Substance: FUROSEMIDE
  5. SPIRIVA [Concomitant]
     Active Substance: TIOTROPIUM BROMIDE MONOHYDRATE
  6. LIPITOR [Concomitant]
     Active Substance: ATORVASTATIN CALCIUM
  7. VALSARTAN. [Concomitant]
     Active Substance: VALSARTAN

REACTIONS (4)
  - Ventricular arrhythmia [Unknown]
  - Pneumonia [Unknown]
  - Death [Fatal]
  - Pneumonitis [Recovered/Resolved]

NARRATIVE: CASE EVENT DATE: 20170112
